FAERS Safety Report 5222842-5 (Version None)
Quarter: 2007Q1

REPORT INFORMATION
  Report Type: 
  Country: None (occurrence: None)
  Receive Date: 20070129
  Receipt Date: 20070125
  Transmission Date: 20070707
  Serious: Yes (Hospitalization)
  Sender: FDA-Public Use
  Company Number: FR-GLAXOSMITHKLINE-B0455635A

PATIENT
  Age: 25 Year
  Sex: Female

DRUGS (5)
  1. NARAMIG [Suspect]
     Indication: MIGRAINE
     Dosage: 5MG UNKNOWN
     Route: 048
     Dates: end: 20061022
  2. ACETAMINOPHEN W/ PROPOXYPHENE HCL [Suspect]
     Dosage: 4UNIT FOUR TIMES PER DAY
     Route: 048
     Dates: end: 20061022
  3. KETOPROFEN [Suspect]
     Dosage: 4UNIT FOUR TIMES PER DAY
     Route: 048
     Dates: end: 20061022
  4. PROPOFOL [Suspect]
     Dosage: 1UNIT TWICE PER DAY
     Route: 048
     Dates: end: 20061022
  5. CONTRAMAL [Suspect]
     Dosage: 3UNIT THREE TIMES PER DAY
     Route: 048
     Dates: end: 20061022

REACTIONS (6)
  - DRUG ABUSER [None]
  - DRUG WITHDRAWAL SYNDROME [None]
  - MIGRAINE WITHOUT AURA [None]
  - NAUSEA [None]
  - PHONOPHOBIA [None]
  - PHOTOPHOBIA [None]
